FAERS Safety Report 5854044-3 (Version None)
Quarter: 2008Q3

REPORT INFORMATION
  Report Type: 
  Country: None (occurrence: None)
  Receive Date: 20080822
  Receipt Date: 20080818
  Transmission Date: 20090109
  Serious: Yes (Other)
  Sender: FDA-Public Use
  Company Number: IE-MERCK-0804GBR00048

PATIENT
  Age: 11 Year
  Sex: Male

DRUGS (5)
  1. SINGULAIR [Suspect]
     Indication: ASTHMA
     Route: 048
     Dates: start: 20051001, end: 20080401
  2. SINGULAIR [Suspect]
     Route: 065
     Dates: start: 20060101
  3. FLUTICASONE PROPIONATE AND SALMETEROL XINAFOATE [Concomitant]
     Indication: ASTHMA
     Dates: start: 20060101
  4. ALBUTEROL [Concomitant]
     Indication: ASTHMA
  5. FLUTICASONE PROPIONATE [Concomitant]

REACTIONS (4)
  - ANXIETY [None]
  - OVERDOSE [None]
  - SLEEP TERROR [None]
  - SUICIDE ATTEMPT [None]
